FAERS Safety Report 9894163 (Version 4)
Quarter: 2015Q2

REPORT INFORMATION
  Report Type: Spontaneous
  Country: US (occurrence: US)
  Receive Date: 20140213
  Receipt Date: 20150415
  Transmission Date: 20150821
  Serious: No
  Sender: FDA-Public Use
  Company Number: US-009507513-1402USA005121

PATIENT
  Sex: Female
  Weight: 61.68 kg

DRUGS (2)
  1. NUVARING [Suspect]
     Active Substance: ETHINYL ESTRADIOL\ETONOGESTREL
     Indication: CONTRACEPTION
     Dosage: 0.12-0.015 MG/24 HR. INSERT FOR 3 WEEKS, REMOVE FOR 1 WEEK
     Route: 067
     Dates: start: 20070418
  2. NUVARING [Suspect]
     Active Substance: ETHINYL ESTRADIOL\ETONOGESTREL
     Indication: MENSTRUATION IRREGULAR

REACTIONS (8)
  - Myalgia [Unknown]
  - Dizziness [Unknown]
  - Injection site haemorrhage [Unknown]
  - Off label use [Unknown]
  - International normalised ratio increased [Unknown]
  - Deep vein thrombosis [Recovered/Resolved]
  - Headache [Unknown]
  - Paraesthesia [Unknown]

NARRATIVE: CASE EVENT DATE: 20070418
